FAERS Safety Report 17933348 (Version 2)
Quarter: 2020Q3

REPORT INFORMATION
  Report Type: Spontaneous
  Country: ES (occurrence: ES)
  Receive Date: 20200623
  Receipt Date: 20200810
  Transmission Date: 20201103
  Serious: Yes (Hospitalization)
  Sender: FDA-Public Use
  Company Number: ES-PFIZER INC-2020239061

PATIENT
  Age: 66 Year
  Sex: Female

DRUGS (6)
  1. VITAMIN D [ERGOCALCIFEROL] [Concomitant]
     Active Substance: ERGOCALCIFEROL
     Indication: OSTEOPOROSIS
     Dosage: UNK
  2. CALCIUM [Concomitant]
     Active Substance: CALCIUM
     Indication: OSTEOPOROSIS
     Dosage: UNK
  3. ZOLPIDEM [Suspect]
     Active Substance: ZOLPIDEM TARTRATE
     Dosage: UNK (FOR 2 WEEKS AND A HALF)
     Route: 065
  4. FLERUDIN [Suspect]
     Active Substance: FLUNARIZINE HYDROCHLORIDE
     Indication: DEPRESSION
     Dosage: 5 MG, 1X/DAY
     Route: 065
     Dates: start: 20200526
  5. SERTRALINE HCL [Suspect]
     Active Substance: SERTRALINE HYDROCHLORIDE
     Dosage: UNK
     Dates: start: 20200518
  6. 25?HYDROXYVITAMIN D3 [Suspect]
     Active Substance: CALCIFEDIOL ANHYDROUS

REACTIONS (4)
  - Blood sodium decreased [Recovered/Resolved]
  - Blood potassium decreased [Recovered/Resolved]
  - Catatonia [Recovered/Resolved]
  - Pulmonary embolism [Recovered/Resolved]
